FAERS Safety Report 5635517-5 (Version None)
Quarter: 2008Q1

REPORT INFORMATION
  Report Type: 
  Country: None (occurrence: None)
  Receive Date: 20080222
  Receipt Date: 20080214
  Transmission Date: 20080703
  Serious: Yes (Other)
  Sender: FDA-Public Use
  Company Number: GB-PFIZER INC-2008014657

PATIENT
  Age: 40 Year
  Sex: Female
  Weight: 59 kg

DRUGS (3)
  1. CHANTIX [Suspect]
     Route: 048
     Dates: start: 20080123, end: 20080126
  2. FLUOXETINE [Concomitant]
  3. OMEPRAZOLE [Concomitant]

REACTIONS (4)
  - ANHEDONIA [None]
  - ANOREXIA [None]
  - DEPRESSION [None]
  - LOSS OF LIBIDO [None]
